FAERS Safety Report 9460353 (Version 1)
Quarter: 2013Q3

REPORT INFORMATION
  Report Type: Report from Study
  Country: US (occurrence: US)
  Receive Date: 20130815
  Receipt Date: 20130815
  Transmission Date: 20140515
  Serious: Yes (Hospitalization)
  Sender: FDA-Public Use
  Company Number: US-ABBOTT-13P-163-1129961-00

PATIENT
  Age: 52 Year
  Sex: Female

DRUGS (6)
  1. HUMIRA [Suspect]
     Indication: COLITIS ULCERATIVE
     Dates: start: 20130609, end: 20130721
  2. HUMIRA [Suspect]
     Indication: PSORIASIS
  3. LOSARTAN [Concomitant]
     Indication: BLOOD PRESSURE
  4. ZOLOFT [Concomitant]
     Indication: DEPRESSION
  5. DEPLIN [Concomitant]
     Indication: DEPRESSION
  6. LIALDA [Concomitant]
     Indication: UNEVALUABLE EVENT

REACTIONS (6)
  - Colitis ulcerative [Not Recovered/Not Resolved]
  - Infection [Not Recovered/Not Resolved]
  - Diarrhoea [Recovering/Resolving]
  - Gastroenteritis viral [Recovering/Resolving]
  - Pyrexia [Recovering/Resolving]
  - Haemorrhage [Unknown]
